FAERS Safety Report 9322128 (Version 1)
Quarter: 2013Q2

REPORT INFORMATION
  Report Type: Report from Study
  Country: KR (occurrence: KR)
  Receive Date: 20130531
  Receipt Date: 20130531
  Transmission Date: 20140414
  Serious: Yes (Death)
  Sender: FDA-Public Use
  Company Number: KR-PFIZER INC-2013163180

PATIENT
  Age: 48 Year
  Sex: Female

DRUGS (2)
  1. PACLITAXEL [Suspect]
     Indication: UTERINE LEIOMYOSARCOMA
     Dosage: 175 MG/M2, EVERY 3 WEEK CYCLE (DELIVERED AS 3-H INTRAVENOUS INFUSION)
     Route: 042
  2. CARBOPLATIN [Suspect]
     Indication: UTERINE LEIOMYOSARCOMA
     Dosage: AUC 5 OVER 30 MIN EVERY 3-WEEK CYCLE
     Route: 042

REACTIONS (1)
  - Septic shock [Fatal]
